FAERS Safety Report 19665511 (Version 1)
Quarter: 2021Q3

REPORT INFORMATION
  Report Type: Spontaneous
  Country: US (occurrence: US)
  Receive Date: 20210806
  Receipt Date: 20210806
  Transmission Date: 20211014
  Serious: No
  Sender: FDA-Public Use
  Company Number: US-ACCORD-220445

PATIENT
  Age: 51 Year
  Sex: Female

DRUGS (3)
  1. DOCETAXEL ACCORD [Suspect]
     Active Substance: DOCETAXEL
     Indication: CHEMOTHERAPY
     Dates: start: 20141209, end: 20150324
  2. HERCEPTIN [Suspect]
     Active Substance: TRASTUZUMAB
     Indication: BREAST CANCER
  3. CARBOPLATIN. [Suspect]
     Active Substance: CARBOPLATIN
     Indication: BREAST CANCER

REACTIONS (4)
  - Asthenia [Unknown]
  - Dacryostenosis acquired [Unknown]
  - Fatigue [Unknown]
  - Hypersensitivity [Unknown]
